FAERS Safety Report 11315982 (Version 1)
Quarter: 2015Q3

REPORT INFORMATION
  Report Type: Spontaneous
  Country: IT (occurrence: None)
  Receive Date: 20150724
  Receipt Date: 20150724
  Transmission Date: 20151125
  Serious: Yes (Other)
  Sender: FDA-Public Use
  Company Number: CO-PL-IT-2015-137

PATIENT
  Age: 85 Year
  Sex: Female

DRUGS (11)
  1. LUVION (CANRENOIC ACID) [Concomitant]
     Active Substance: CANRENOIC ACID
  2. ALPRAZOLAM. [Concomitant]
     Active Substance: ALPRAZOLAM
  3. LANOXIN ()DIGOXIN) [Concomitant]
  4. TRIATEC (RAMIPRIL) [Concomitant]
     Active Substance: RAMIPRIL
  5. COUMADIN [Suspect]
     Active Substance: WARFARIN SODIUM
     Indication: CEREBROVASCULAR ACCIDENT PROPHYLAXIS
     Route: 048
     Dates: start: 20100331, end: 20150702
  6. TILDIEM (DILTIAZEM HYDROCHLORIDE) [Concomitant]
  7. ALIFLUS (FLUTICASONE PROPIONATE, SALMETEROL XINAFOATE) [Concomitant]
  8. DELTACORTENE [Suspect]
     Active Substance: PREDNISONE
     Indication: RHEUMATOID ARTHRITIS
     Route: 048
     Dates: start: 20150626, end: 20150702
  9. DIBASE [Suspect]
     Active Substance: CHOLECALCIFEROL
     Indication: VITAMIN D DEFICIENCY
     Route: 048
     Dates: start: 20150626, end: 20150702
  10. OMEPRAZOLE. [Concomitant]
     Active Substance: OMEPRAZOLE
  11. PLAQUENIL [Suspect]
     Active Substance: HYDROXYCHLOROQUINE SULFATE
     Indication: RHEUMATOID ARTHRITIS
     Route: 048
     Dates: start: 20150626, end: 20150702

REACTIONS (2)
  - Drug interaction [None]
  - International normalised ratio increased [None]

NARRATIVE: CASE EVENT DATE: 20150702
